FAERS Safety Report 14674243 (Version 1)
Quarter: 2018Q1

REPORT INFORMATION
  Report Type: Spontaneous
  Country: US (occurrence: US)
  Receive Date: 20180323
  Receipt Date: 20180323
  Transmission Date: 20180509
  Serious: No
  Sender: FDA-Public Use
  Company Number: US-PFIZER INC-2018121785

PATIENT
  Sex: Female
  Weight: 96 kg

DRUGS (1)
  1. GABAPENTIN. [Suspect]
     Active Substance: GABAPENTIN
     Dosage: UNK (HIGH DOSE)

REACTIONS (2)
  - Confusional state [Unknown]
  - Impaired driving ability [Unknown]
